FAERS Safety Report 5734416-8 (Version None)
Quarter: 2008Q2

REPORT INFORMATION
  Report Type: 
  Country: None (occurrence: None)
  Receive Date: 20080508
  Receipt Date: 20080430
  Transmission Date: 20081010
  Serious: Yes (Hospitalization)
  Sender: FDA-Public Use
  Company Number: 163-21880-08050002

PATIENT
  Age: 78 Year
  Sex: Male

DRUGS (3)
  1. REVLIMID [Suspect]
     Indication: MULTIPLE MYELOMA
     Dosage: X21 DAYS EVERY 28 DAYS16/, ORAL; X21 DAYS EVERY 28 DAYS, ORAL
     Route: 048
     Dates: start: 20070611, end: 20070701
  2. REVLIMID [Suspect]
     Indication: MULTIPLE MYELOMA
     Dosage: X21 DAYS EVERY 28 DAYS16/, ORAL; X21 DAYS EVERY 28 DAYS, ORAL
     Route: 048
     Dates: start: 20070716, end: 20070801
  3. REVLIMID [Suspect]
     Indication: MULTIPLE MYELOMA
     Dosage: X21 DAYS EVERY 28 DAYS16/, ORAL; X21 DAYS EVERY 28 DAYS, ORAL
     Route: 048
     Dates: start: 20070918

REACTIONS (7)
  - FATIGUE [None]
  - FEBRILE NEUTROPENIA [None]
  - HYPOAESTHESIA [None]
  - HYPOTENSION [None]
  - NAUSEA [None]
  - PNEUMONIA [None]
  - SKIN LESION [None]
